FAERS Safety Report 7691104-9 (Version None)
Quarter: 2011Q3

REPORT INFORMATION
  Report Type: 
  Country: None (occurrence: None)
  Receive Date: 20110815
  Receipt Date: 20110805
  Transmission Date: 20111222
  Serious: Yes (Hospitalization)
  Sender: FDA-Public Use
  Company Number: 2011AP001440

PATIENT

DRUGS (9)
  1. OMEPRAZOLE [Concomitant]
  2. CLARITHROMYCIN [Suspect]
     Indication: PULMONARY EMBOLISM
     Dosage: 500 MG PO
     Route: 048
     Dates: start: 20110322, end: 20110328
  3. ALLOPURINOL [Concomitant]
  4. CODEINE PHOSPHATE (CODEINE PHOSPHATE) [Concomitant]
  5. FOLIC ACID [Concomitant]
  6. ACETAMINOPHEN [Concomitant]
  7. WARFARIN SODIUM [Suspect]
     Indication: LOWER RESPIRATORY TRACT INFECTION
  8. COLECALCIFEROL (COLECALCIFEROL) [Concomitant]
  9. FUROSEMIDE [Concomitant]

REACTIONS (3)
  - INTERNATIONAL NORMALISED RATIO INCREASED [None]
  - DRUG INTERACTION [None]
  - EPISTAXIS [None]
